FAERS Safety Report 4909175-9 (Version None)
Quarter: 2006Q1

REPORT INFORMATION
  Report Type: 
  Country: None (occurrence: None)
  Receive Date: 20060208
  Receipt Date: 20060124
  Transmission Date: 20060701
  Serious: Yes (Death)
  Sender: FDA-Public Use
  Company Number: 2006-US-00518

PATIENT
  Age: 18 Year
  Sex: Female

DRUGS (2)
  1. MISOPROSTOL [Suspect]
     Indication: ABORTION
     Dosage: 800 UG, VAGINAL/ONCE
     Route: 067
  2. MIFEPRISTONE [Suspect]
     Indication: ABORTION
     Dosage: 200 MG, ORAL/ONCE
     Route: 048

REACTIONS (20)
  - ABDOMINAL PAIN [None]
  - ASTHENIA [None]
  - BLOOD ALBUMIN DECREASED [None]
  - BRADYCARDIA [None]
  - DRUG EXPOSURE DURING PREGNANCY [None]
  - DYSURIA [None]
  - GARDNERELLA INFECTION [None]
  - HAEMATOCRIT INCREASED [None]
  - HYPOTENSION [None]
  - HYPOXIA [None]
  - LUNG INFILTRATION [None]
  - METABOLIC ACIDOSIS [None]
  - MUCOUS MEMBRANE DISORDER [None]
  - NAUSEA [None]
  - RESPIRATORY DISTRESS [None]
  - RETAINED PLACENTA OR MEMBRANES [None]
  - TACHYCARDIA [None]
  - ULTRASOUND SCAN ABNORMAL [None]
  - VOMITING [None]
  - WHITE BLOOD CELL COUNT INCREASED [None]
